FAERS Safety Report 6358283-7 (Version None)
Quarter: 2009Q3

REPORT INFORMATION
  Report Type: 
  Country: None (occurrence: None)
  Receive Date: 20090911
  Receipt Date: 20090902
  Transmission Date: 20100115
  Serious: Yes (Disabling)
  Sender: FDA-Public Use
  Company Number: 230020J09CAN

PATIENT
  Sex: Female

DRUGS (15)
  1. REBIF [Suspect]
     Indication: RELAPSING-REMITTING MULTIPLE SCLEROSIS
     Dosage: 22 MCG, 3 IN 1 WEEKS ; 44 MCG
     Dates: start: 20050902, end: 20060501
  2. REBIF [Suspect]
     Indication: RELAPSING-REMITTING MULTIPLE SCLEROSIS
     Dosage: 22 MCG, 3 IN 1 WEEKS ; 44 MCG
     Dates: start: 20060503
  3. APO-DEZIPRAMINE (DESIPRAMINE) [Concomitant]
  4. RIMACLONAZEPAM (CLONAZEPAM) [Concomitant]
  5. TOPAMAX (TOPIIRAMATE) [Concomitant]
  6. DESMOPRESSIN ACETATE [Concomitant]
  7. RATIO-CYCLOBENZAPRIME (CYCLOBENZAPRINE) [Concomitant]
  8. RATIO-CITALOPRAM (CITALOPRAM HYDROBROMIDE) [Concomitant]
  9. CELEBREX [Concomitant]
  10. APO-OXZEPAM (OXAZEPAM) [Concomitant]
  11. OXY-ACETAMINOPHEN (PARACETAMOL) [Concomitant]
  12. DESIPRAMINE HCL [Concomitant]
  13. NOVO-CARBAMAZ (CARBAMAZEPINE) [Concomitant]
  14. CESAMET [Concomitant]
  15. OTHER MEDICATIONS(ALL OTHER THERAPEUTIC PRODUCTS) [Concomitant]

REACTIONS (7)
  - ABASIA [None]
  - AMNESIA [None]
  - BURNING SENSATION [None]
  - DECREASED APPETITE [None]
  - FEELING ABNORMAL [None]
  - PAIN IN EXTREMITY [None]
  - SUICIDAL IDEATION [None]
